FAERS Safety Report 8942795 (Version 2)
Quarter: 2012Q4

REPORT INFORMATION
  Report Type: 
  Country: US (occurrence: US)
  Receive Date: 20121121
  Receipt Date: 20121212
  Transmission Date: 20130627
  Serious: Yes (Death)
  Sender: FDA-Public Use
  Company Number: US-ASTELLAS-1113902

PATIENT
  Age: 78 Year
  Sex: Female

DRUGS (9)
  1. TARCEVA [Suspect]
     Indication: MALIGNANT RESPIRATORY TRACT NEOPLASM
     Route: 048
     Dates: start: 20050628, end: 20050908
  2. HYTRIN [Concomitant]
  3. ZOLOFT [Concomitant]
  4. PROVENTIL [Concomitant]
  5. FLONASE [Concomitant]
  6. FLOVENT [Concomitant]
  7. PRILOSEC [Concomitant]
  8. PREMARIN [Concomitant]
  9. PROVENTIL INHALER [Concomitant]

REACTIONS (5)
  - Rash [Unknown]
  - Skin exfoliation [Unknown]
  - Pain in extremity [Recovering/Resolving]
  - Chronic obstructive pulmonary disease [Fatal]
  - Disease progression [Fatal]
